FAERS Safety Report 9879805 (Version 1)
Quarter: 2014Q1

REPORT INFORMATION
  Report Type: Spontaneous
  Country: CA (occurrence: CA)
  Receive Date: 20140206
  Receipt Date: 20140206
  Transmission Date: 20141002
  Serious: Yes (Other)
  Sender: FDA-Public Use
  Company Number: CA-ACTAVIS-2014-01476

PATIENT
  Sex: 0

DRUGS (1)
  1. LEVOFLOXACIN [Suspect]
     Indication: PNEUMONIA
     Dosage: 750 MG, DAILY
     Dates: start: 20140122, end: 20140122

REACTIONS (6)
  - Blindness transient [Recovered/Resolved]
  - Vision blurred [Not Recovered/Not Resolved]
  - Visual acuity reduced [Recovering/Resolving]
  - Ocular hyperaemia [Recovering/Resolving]
  - Dizziness [Recovered/Resolved]
  - Somnolence [Recovered/Resolved]
